FAERS Safety Report 13010056 (Version 1)
Quarter: 2016Q4

REPORT INFORMATION
  Report Type: Other
  Country: None (occurrence: US)
  Receive Date: 20161208
  Receipt Date: 20161208
  Transmission Date: 20170207
  Serious: Yes (Hospitalization, Other)
  Sender: FDA-Public Use
  Company Number: US-GUTHY-RENKER LLC-1060591

PATIENT
  Age: 47 Year
  Sex: Female

DRUGS (2)
  1. ANTHRAX, GABAPENTIN, AND REMERON [Concomitant]
  2. IT COSMETICS BYE BYE FOUNDATION WITH SPF 50+ [Suspect]
     Active Substance: TITANIUM DIOXIDE\ZINC OXIDE
     Indication: PROPHYLAXIS AGAINST SOLAR RADIATION
     Route: 061
     Dates: start: 20161019, end: 20161020

REACTIONS (3)
  - Pruritus [Recovering/Resolving]
  - Pain [None]
  - Urticaria [None]

NARRATIVE: CASE EVENT DATE: 20161020
